FAERS Safety Report 8303710-9 (Version None)
Quarter: 2012Q2

REPORT INFORMATION
  Report Type: 
  Country: None (occurrence: None)
  Receive Date: 20120423
  Receipt Date: 20120409
  Transmission Date: 20120825
  Serious: Yes (Hospitalization, Other)
  Sender: FDA-Public Use
  Company Number: US-SANOFI-AVENTIS-2012SA024810

PATIENT
  Age: 76 Year
  Sex: Female
  Weight: 71.21 kg

DRUGS (11)
  1. HYDROCHLOROTHIAZIDE [Suspect]
  2. MONTELUKAST SODIUM [Concomitant]
  3. ASPIRIN [Concomitant]
     Indication: THROMBOSIS PROPHYLAXIS
     Dates: start: 20120201
  4. ATORVASTATIN [Suspect]
     Route: 048
     Dates: start: 20110101
  5. PLAVIX [Suspect]
     Route: 048
     Dates: start: 20110301
  6. AMLODIPINE [Suspect]
     Route: 048
  7. AMLODIPINE [Suspect]
     Route: 048
  8. AMLODIPINE [Suspect]
     Route: 048
  9. ALL OTHER NON-THERAPEUTIC PRODUCTS [Suspect]
  10. ATORVASTATIN CALCIUM [Suspect]
     Route: 048
  11. ATENOLOL [Concomitant]
     Route: 048

REACTIONS (4)
  - RENAL FAILURE [None]
  - DEHYDRATION [None]
  - NEPHROPATHY [None]
  - BLOOD CHOLESTEROL INCREASED [None]
